FAERS Safety Report 23646760 (Version 2)
Quarter: 2024Q4

REPORT INFORMATION
  Report Type: Spontaneous
  Country: JP (occurrence: JP)
  Receive Date: 20240319
  Receipt Date: 20241225
  Transmission Date: 20250114
  Serious: Yes (Other)
  Sender: ROCHE
  Company Number: JP-CHUGAI-2024008571AA

PATIENT
  Age: 85 Year
  Sex: Male

DRUGS (1)
  1. TECENTRIQ [Suspect]
     Active Substance: ATEZOLIZUMAB
     Indication: Hepatocellular carcinoma
     Dosage: UNK
     Route: 065

REACTIONS (1)
  - Pemphigoid [Unknown]
